FAERS Safety Report 7971816 (Version 2)
Quarter: 2012Q4

REPORT INFORMATION
  Report Type: 
  Country: PT (occurrence: PT)
  Receive Date: 20110602
  Receipt Date: 20121115
  Transmission Date: 20130627
  Serious: Yes (Other)
  Sender: FDA-Public Use
  Company Number: PT-UCBSA-033778

PATIENT
  Age: 28 Year
  Sex: Female

DRUGS (4)
  1. KEPPRA [Suspect]
     Indication: GRAND MAL CONVULSION
     Route: 048
     Dates: start: 2009
  2. KEPPRA [Suspect]
     Indication: GRAND MAL CONVULSION
     Dosage: UPTITRATION
  3. KEPPRA [Suspect]
     Indication: GRAND MAL CONVULSION
     Route: 048
  4. FOLICI-R [Concomitant]
     Indication: FOLATE DEFICIENCY
     Route: 048

REACTIONS (3)
  - Abortion spontaneous [Unknown]
  - Twin pregnancy [Recovered/Resolved]
  - Pregnancy [Recovered/Resolved]
